FAERS Safety Report 21073978 (Version 3)
Quarter: 2022Q3

REPORT INFORMATION
  Report Type: Spontaneous
  Country: US (occurrence: None)
  Receive Date: 20220713
  Receipt Date: 20220825
  Transmission Date: 20221026
  Serious: Yes (Hospitalization)
  Sender: FDA-Public Use
  Company Number: US-ROCHE-3136473

PATIENT
  Age: 82 Year
  Sex: Female

DRUGS (1)
  1. ESBRIET [Suspect]
     Active Substance: PIRFENIDONE
     Indication: Idiopathic pulmonary fibrosis
     Dosage: ONGOING: YES
     Route: 048
     Dates: start: 202109

REACTIONS (2)
  - Urinary tract infection [Unknown]
  - Asthenia [Unknown]

NARRATIVE: CASE EVENT DATE: 20220704
